FAERS Safety Report 15233563 (Version 1)
Quarter: 2018Q3

REPORT INFORMATION
  Report Type: Spontaneous
  Country: US (occurrence: US)
  Receive Date: 20180709
  Receipt Date: 20180709
  Transmission Date: 20181010
  Serious: Yes (Life-Threatening, Hospitalization, Other)
  Sender: FDA-Public Use
  Company Number: None

PATIENT
  Age: 46 Year
  Sex: Female
  Weight: 104 kg

DRUGS (1)
  1. BUPROPION XL [Suspect]
     Active Substance: BUPROPION
     Indication: DEPRESSION
     Route: 048
     Dates: start: 20170918, end: 20180706

REACTIONS (8)
  - Nausea [None]
  - Generalised tonic-clonic seizure [None]
  - Drug dose omission [None]
  - Intentional overdose [None]
  - Fall [None]
  - Suicidal ideation [None]
  - Vomiting [None]
  - Memory impairment [None]

NARRATIVE: CASE EVENT DATE: 20180706
